FAERS Safety Report 16306839 (Version 2)
Quarter: 2019Q2

REPORT INFORMATION
  Report Type: Spontaneous
  Country: US (occurrence: US)
  Receive Date: 20190513
  Receipt Date: 20190523
  Transmission Date: 20190711
  Serious: Yes (Other)
  Sender: FDA-Public Use
  Company Number: US-ASSERTIO THERAPEUTICS, INC.-US-2019DEP000422

PATIENT
  Sex: Male
  Weight: 77.98 kg

DRUGS (8)
  1. OXYCODONE [Concomitant]
     Active Substance: OXYCODONE
     Dosage: 20 UNK, UNK
  2. GRALISE [Suspect]
     Active Substance: GABAPENTIN
     Indication: MUSCLE SPASTICITY
  3. OXYCODONE [Concomitant]
     Active Substance: OXYCODONE
     Indication: BREAKTHROUGH PAIN
     Dosage: 30 MG, PRN
  4. GRALISE [Suspect]
     Active Substance: GABAPENTIN
     Indication: NEUROPATHY PERIPHERAL
     Dosage: 2400 MG, QD
     Route: 048
  5. OXYBUTYNIN. [Concomitant]
     Active Substance: OXYBUTYNIN CHLORIDE
     Indication: NEUROGENIC BLADDER
     Dosage: 20 MG, UNK
     Route: 048
     Dates: start: 2001
  6. GRALISE [Suspect]
     Active Substance: GABAPENTIN
     Indication: SPINAL OSTEOARTHRITIS
     Dosage: 1800 MG, QD
     Route: 048
  7. LISINOPRIL. [Concomitant]
     Active Substance: LISINOPRIL
     Indication: BLOOD PRESSURE MANAGEMENT
     Dosage: 20 MG, UNK
     Route: 048
  8. FENTANYL. [Concomitant]
     Active Substance: FENTANYL
     Indication: PRODUCT USED FOR UNKNOWN INDICATION

REACTIONS (11)
  - Drug titration error [Unknown]
  - Drug ineffective for unapproved indication [Unknown]
  - Head and neck cancer [Recovered/Resolved]
  - Dizziness [Recovered/Resolved]
  - Expired product administered [Unknown]
  - Overdose [Unknown]
  - Insomnia [Not Recovered/Not Resolved]
  - Renal cancer [Recovered/Resolved with Sequelae]
  - Product use in unapproved indication [Unknown]
  - Flank pain [Not Recovered/Not Resolved]
  - Pain [Not Recovered/Not Resolved]

NARRATIVE: CASE EVENT DATE: 2015
